FAERS Safety Report 20408651 (Version 1)
Quarter: 2022Q1

REPORT INFORMATION
  Report Type: Other
  Country: US (occurrence: US)
  Receive Date: 20220201
  Receipt Date: 20220201
  Transmission Date: 20220423
  Serious: No
  Sender: FDA-Public Use
  Company Number: US-NEUROCRINE BIOSCIENCES INC.-2022NBI00482

PATIENT

DRUGS (1)
  1. INGREZZA [Suspect]
     Active Substance: VALBENAZINE
     Indication: Chorea
     Dosage: 80 MILLIGRAM, QD
     Route: 048
     Dates: start: 20211210

REACTIONS (2)
  - Somnolence [Unknown]
  - Off label use [Unknown]
